APPROVED DRUG PRODUCT: METFORMIN HYDROCHLORIDE
Active Ingredient: METFORMIN HYDROCHLORIDE
Strength: 850MG
Dosage Form/Route: TABLET;ORAL
Application: A077787 | Product #002 | TE Code: AB
Applicant: DR REDDYS LABORATORIES INC
Approved: Aug 23, 2006 | RLD: No | RS: No | Type: RX